FAERS Safety Report 19381720 (Version 1)
Quarter: 2021Q2

REPORT INFORMATION
  Report Type: Spontaneous
  Country: GB (occurrence: GB)
  Receive Date: 20210607
  Receipt Date: 20210607
  Transmission Date: 20210717
  Serious: Yes (Other)
  Sender: FDA-Public Use
  Company Number: GB-ALIMERA SCIENCES LIMITED-GB-A16013-21-000110

PATIENT

DRUGS (4)
  1. ILUVIEN [Suspect]
     Active Substance: FLUOCINOLONE ACETONIDE
     Dosage: 0.25 MICROGRAM, QD ? LEFT EYE
     Route: 031
  2. ILUVIEN [Suspect]
     Active Substance: FLUOCINOLONE ACETONIDE
     Dosage: 0.25 MICROGRAM, QD ? RIGHT EYE
     Route: 031
  3. ILUVIEN [Suspect]
     Active Substance: FLUOCINOLONE ACETONIDE
     Indication: CYSTOID MACULAR OEDEMA
     Dosage: 0.25 MICROGRAM, QD ? LEFT EYE; 2 WEEKS LATER AFTER RIGHT EYE
     Route: 031
  4. ILUVIEN [Suspect]
     Active Substance: FLUOCINOLONE ACETONIDE
     Indication: IRIDOCYCLITIS
     Dosage: 0.25 MICROGRAM, QD ? RIGHT EYE
     Route: 031
     Dates: start: 201403

REACTIONS (6)
  - Device issue [Unknown]
  - Off label use [Unknown]
  - Hypopyon [Recovered/Resolved]
  - Uveitis [Recovered/Resolved]
  - Visual acuity reduced [Recovering/Resolving]
  - Anterior chamber flare [Recovered/Resolved]

NARRATIVE: CASE EVENT DATE: 201403
